FAERS Safety Report 6714493-8 (Version None)
Quarter: 2010Q2

REPORT INFORMATION
  Report Type: 
  Country: None (occurrence: None)
  Receive Date: 20100506
  Receipt Date: 20100427
  Transmission Date: 20101027
  Serious: Yes (Other)
  Sender: FDA-Public Use
  Company Number: US-AMGEN-QUU403258

PATIENT
  Sex: Female
  Weight: 67.5 kg

DRUGS (27)
  1. NPLATE [Suspect]
     Indication: IDIOPATHIC THROMBOCYTOPENIC PURPURA
     Dates: start: 20081205
  2. LENALIDOMIDE [Concomitant]
     Route: 048
     Dates: start: 20100413
  3. OMEPRAZOLE [Concomitant]
     Route: 048
     Dates: start: 20090205
  4. UNSPECIFIED MEDICATION [Concomitant]
  5. K-DUR [Concomitant]
     Route: 048
     Dates: start: 20090205
  6. FIORICET [Concomitant]
     Route: 048
     Dates: start: 20090205
  7. CALCIUM [Concomitant]
  8. ALPRAZOLAM [Concomitant]
     Route: 048
     Dates: start: 20090205
  9. PROPRANOLOL [Concomitant]
     Route: 048
     Dates: start: 20090205
  10. SIMVASTATIN [Concomitant]
     Route: 048
     Dates: start: 20100205
  11. DESONIDE [Concomitant]
     Dates: start: 20040617
  12. ACETAMINOPHEN AND HYDROCODONE BITARTRATE [Concomitant]
     Route: 048
     Dates: start: 20071211
  13. HYDROCORTISONE [Concomitant]
     Route: 061
     Dates: start: 20091124
  14. KETOROLAC TROMETHAMINE [Concomitant]
     Dates: start: 20100218
  15. LIDOCAINE HYDROCHLORIDE/PRILOCAINE HYDROCHLORIDE [Concomitant]
     Route: 061
     Dates: start: 20080808
  16. LIDODERM [Concomitant]
     Dates: start: 20080121
  17. OFLOXACIN [Concomitant]
     Dates: start: 20100218
  18. ONDANSETRON [Concomitant]
     Route: 048
     Dates: start: 20090818
  19. PRED FORTE [Concomitant]
     Dates: start: 20100218
  20. PREMARIN [Concomitant]
     Route: 061
     Dates: start: 20090202
  21. TRIAMCINOLONE ACETONIDE [Concomitant]
     Route: 061
     Dates: start: 20090812
  22. TRIAMTERENE AND HYDROCHLOROTHIAZIDE [Concomitant]
     Route: 048
     Dates: start: 20090422
  23. ZOMETA [Concomitant]
     Route: 042
  24. IMMU-G [Concomitant]
     Route: 042
     Dates: end: 20090301
  25. RITUXIMAB [Concomitant]
     Dates: end: 20090301
  26. ASPIRIN [Concomitant]
  27. ARANESP [Concomitant]

REACTIONS (5)
  - BACK PAIN [None]
  - COUGH [None]
  - FATIGUE [None]
  - NASOPHARYNGITIS [None]
  - THERAPEUTIC RESPONSE DECREASED [None]
